FAERS Safety Report 12288126 (Version 1)
Quarter: 2016Q2

REPORT INFORMATION
  Report Type: Spontaneous
  Country: US (occurrence: US)
  Receive Date: 20160420
  Receipt Date: 20160420
  Transmission Date: 20160815
  Serious: Yes (Death, Hospitalization)
  Sender: FDA-Public Use
  Company Number: PHHY2015US133904

PATIENT
  Age: 57 Year
  Sex: Male

DRUGS (3)
  1. MEKINIST [Suspect]
     Active Substance: TRAMETINIB DIMETHYL SULFOXIDE
     Indication: PROSTATE CANCER
     Dosage: UNK UNK, OT
     Route: 065
     Dates: start: 20150408
  2. METOPROLOL TARTRATE. [Concomitant]
     Active Substance: METOPROLOL TARTRATE
     Indication: PRODUCT USED FOR UNKNOWN INDICATION
     Route: 065
  3. TAFINLAR [Suspect]
     Active Substance: DABRAFENIB MESYLATE
     Indication: MALIGNANT MELANOMA
     Dosage: 2 DF, Q12H
     Route: 048
     Dates: start: 20150414

REACTIONS (7)
  - Malignant neoplasm progression [Fatal]
  - Cardiac function test abnormal [Unknown]
  - Dyspnoea [Unknown]
  - Heart rate increased [Unknown]
  - Product use issue [Unknown]
  - Pulmonary oedema [Unknown]
  - Cardiac failure congestive [Unknown]

NARRATIVE: CASE EVENT DATE: 20150419
